FAERS Safety Report 18489222 (Version 1)
Quarter: 2020Q4

REPORT INFORMATION
  Report Type: Spontaneous
  Country: DE (occurrence: DE)
  Receive Date: 20201111
  Receipt Date: 20201111
  Transmission Date: 20210114
  Serious: Yes (Other)
  Sender: FDA-Public Use
  Company Number: DE-SUN PHARMACEUTICAL INDUSTRIES LTD-2020R1-267176

PATIENT
  Age: 11 Year
  Sex: Female

DRUGS (4)
  1. PREDNISOLONE. [Suspect]
     Active Substance: PREDNISOLONE
     Dosage: 0.25 MILLIGRAM/KILOGRAM, DAILY, HIGH DOSE ONE HLAF YEAR LATER
     Route: 065
     Dates: end: 201612
  2. PREDNISOLONE. [Suspect]
     Active Substance: PREDNISOLONE
     Indication: HYPERCALCAEMIA
     Dosage: A HIGH DOSE OF PREDNISOLONE WAS STARTED
     Route: 065
     Dates: end: 201612
  3. PREDNISOLONE. [Suspect]
     Active Substance: PREDNISOLONE
     Dosage: PREDNISOLONE TREATMENT WAS CONTINUED AT A LOWERED DOSE
     Route: 065
     Dates: end: 201612
  4. FUROSEMIDE. [Suspect]
     Active Substance: FUROSEMIDE
     Indication: HYPERCALCAEMIA
     Dosage: UNK
     Route: 065

REACTIONS (2)
  - Cushing^s syndrome [Not Recovered/Not Resolved]
  - Drug ineffective [Unknown]
